FAERS Safety Report 5113111-2 (Version None)
Quarter: 2006Q3

REPORT INFORMATION
  Report Type: 
  Country: None (occurrence: None)
  Receive Date: 20060920
  Receipt Date: 20060905
  Transmission Date: 20061208
  Serious: Yes (Death, Life-Threatening, Hospitalization)
  Sender: FDA-Public Use
  Company Number: 229565

PATIENT
  Age: 78 Year
  Sex: Female
  Weight: 68.9 kg

DRUGS (10)
  1. AVASTIN [Suspect]
     Indication: SMALL CELL LUNG CANCER STAGE UNSPECIFIED
     Dosage: 10 MG/KG, DAYS 1 + 15, INTRAVENOUS
     Route: 042
     Dates: start: 20060727, end: 20060727
  2. CAMPTOSAR [Suspect]
     Indication: SMALL CELL LUNG CANCER STAGE UNSPECIFIED
     Dosage: 60 MG/M2, DAYS 1,8,15, INTRAVENOUS
     Route: 042
     Dates: start: 20060727, end: 20060803
  3. CARBOPLATIN [Concomitant]
  4. RADIATION (RADIATION THERAPY) [Concomitant]
  5. NIFEDIPINE SA (NIFEDIPINE) [Concomitant]
  6. LISINOPRIL (LISIONOPRIL) [Concomitant]
  7. HYDROCHLOROTHIAZIDE [Concomitant]
  8. ASPIRIN [Concomitant]
  9. LATANOPROST [Concomitant]
  10. TIOTROPIUM BROMIDE (TIOTROPIUM BROMIDE) [Concomitant]

REACTIONS (27)
  - ASTHENIA [None]
  - ATRIAL FIBRILLATION [None]
  - BLOOD ALBUMIN DECREASED [None]
  - BLOOD CALCIUM DECREASED [None]
  - BLOOD LACTIC ACID INCREASED [None]
  - BLOOD SODIUM DECREASED [None]
  - CARDIO-RESPIRATORY ARREST [None]
  - DIARRHOEA [None]
  - EATING DISORDER [None]
  - HAEMATOCRIT DECREASED [None]
  - HAEMOGLOBIN DECREASED [None]
  - HYPONATRAEMIA [None]
  - HYPOTENSION [None]
  - INFECTION [None]
  - INTESTINAL DILATATION [None]
  - INTESTINAL ISCHAEMIA [None]
  - ISCHAEMIA [None]
  - MEGACOLON [None]
  - METABOLIC ACIDOSIS [None]
  - NAUSEA [None]
  - NECROSIS [None]
  - PROTEIN TOTAL DECREASED [None]
  - RED BLOOD CELL COUNT DECREASED [None]
  - RENAL FAILURE ACUTE [None]
  - STAPHYLOCOCCAL INFECTION [None]
  - ULCER [None]
  - WHITE BLOOD CELL COUNT INCREASED [None]
